FAERS Safety Report 7389159-4 (Version None)
Quarter: 2011Q2

REPORT INFORMATION
  Report Type: 
  Country: None (occurrence: None)
  Receive Date: 20110401
  Receipt Date: 20110321
  Transmission Date: 20111010
  Serious: Yes (Other)
  Sender: FDA-Public Use
  Company Number: ES-ROCHE-768422

PATIENT
  Age: 38 Year

DRUGS (2)
  1. BEVACIZUMAB [Suspect]
     Indication: RETINAL VEIN OCCLUSION
     Route: 031
  2. CHLORAMPHENICOL [Concomitant]
     Dosage: FOR 3 DAYS AFTER BEVACIZUMAB INJECTION
     Route: 061

REACTIONS (1)
  - MACULOPATHY [None]
